FAERS Safety Report 17498754 (Version 2)
Quarter: 2020Q1

REPORT INFORMATION
  Report Type: Spontaneous
  Country: US (occurrence: US)
  Receive Date: 20200304
  Receipt Date: 20200304
  Transmission Date: 20200409
  Serious: Yes (Hospitalization, Other)
  Sender: FDA-Public Use
  Company Number: US-009507513-2002USA010585

PATIENT
  Sex: Female

DRUGS (2)
  1. LENVATINIB [Concomitant]
     Active Substance: LENVATINIB
  2. KEYTRUDA [Suspect]
     Active Substance: PEMBROLIZUMAB
     Indication: ENDOMETRIAL CANCER
     Dosage: 200 MILLIGRAM, EVERY 21 DAYS
     Route: 042
     Dates: start: 20191210, end: 20200225

REACTIONS (2)
  - Malignant neoplasm progression [Not Recovered/Not Resolved]
  - Wound [Not Recovered/Not Resolved]
